FAERS Safety Report 21619726 (Version 1)
Quarter: 2022Q4

REPORT INFORMATION
  Report Type: Spontaneous
  Country: US (occurrence: US)
  Receive Date: 20221121
  Receipt Date: 20221121
  Transmission Date: 20230112
  Serious: Yes (Hospitalization)
  Sender: FDA-Public Use
  Company Number: US-MTPC-MTDA2022-0031242

PATIENT
  Sex: Male

DRUGS (5)
  1. RADICAVA [Suspect]
     Active Substance: EDARAVONE
     Indication: Amyotrophic lateral sclerosis
     Dosage: 14 ON, 14 OFF
     Route: 048
     Dates: start: 20220820
  2. RADICAVA [Suspect]
     Active Substance: EDARAVONE
     Indication: Amyotrophic lateral sclerosis
     Dosage: 14 ON, 14 OFF
     Route: 048
     Dates: start: 20220820
  3. RADICAVA [Suspect]
     Active Substance: EDARAVONE
     Dosage: 10 ON OUT OF 14, 14 OFF
     Route: 048
  4. RADICAVA [Suspect]
     Active Substance: EDARAVONE
     Dosage: 10 ON OUT OF 14, 14 OFF
     Route: 048
  5. RILUZOLE [Concomitant]
     Active Substance: RILUZOLE
     Indication: Product used for unknown indication
     Route: 065

REACTIONS (3)
  - Malnutrition [Unknown]
  - Decreased appetite [Unknown]
  - Nausea [Unknown]
